APPROVED DRUG PRODUCT: ISOLYTE S IN DEXTROSE 5% IN PLASTIC CONTAINER
Active Ingredient: DEXTROSE; MAGNESIUM CHLORIDE; POTASSIUM CHLORIDE; SODIUM ACETATE; SODIUM CHLORIDE; SODIUM GLUCONATE
Strength: 5GM/100ML;30MG/100ML;37MG/100ML;370MG/100ML;530MG/100ML;500MG/100ML
Dosage Form/Route: INJECTABLE;INJECTION
Application: N019843 | Product #001
Applicant: B BRAUN MEDICAL INC
Approved: Aug 9, 1993 | RLD: No | RS: No | Type: DISCN